FAERS Safety Report 21140104 (Version 1)
Quarter: 2022Q3

REPORT INFORMATION
  Report Type: Spontaneous
  Country: US (occurrence: US)
  Receive Date: 20220728
  Receipt Date: 20220728
  Transmission Date: 20221027
  Serious: Yes (Life-Threatening, Hospitalization, Other)
  Sender: FDA-Public Use
  Company Number: US-INGENUS PHARMACEUTICALS, LLC-2022INF000058

PATIENT

DRUGS (3)
  1. CYCLOPHOSPHAMIDE [Suspect]
     Active Substance: CYCLOPHOSPHAMIDE
     Indication: Ewing^s sarcoma
     Dosage: 420 MILLIGRAM
     Route: 042
     Dates: start: 20211129, end: 20220423
  2. SECLIDEMSTAT [Suspect]
     Active Substance: SECLIDEMSTAT
     Indication: Ewing^s sarcoma
     Dosage: 900 MILLIGRAM, BID
     Route: 048
     Dates: start: 20211129, end: 20220429
  3. TOPOTECAN [Suspect]
     Active Substance: TOPOTECAN HYDROCHLORIDE
     Indication: Ewing^s sarcoma
     Dosage: 1.3 MILLIGRAM
     Route: 042
     Dates: start: 20211129, end: 20220423

REACTIONS (26)
  - Hypokalaemia [Recovering/Resolving]
  - Haemoglobin decreased [Recovering/Resolving]
  - Blood chloride decreased [Recovering/Resolving]
  - Blood phosphorus decreased [Recovering/Resolving]
  - Hyponatraemia [Recovered/Resolved]
  - Pancytopenia [Recovering/Resolving]
  - Neutropenia [Recovering/Resolving]
  - Tachycardia [Unknown]
  - Tachypnoea [Unknown]
  - Pseudomonas infection [Recovered/Resolved]
  - Encephalopathy [Recovered/Resolved]
  - Septic shock [Recovered/Resolved]
  - Cellulitis gangrenous [Recovered/Resolved]
  - Hypervolaemia [Unknown]
  - Thrombocytopenia [Recovering/Resolving]
  - Acute kidney injury [Recovering/Resolving]
  - Venoocclusive disease [Recovered/Resolved]
  - Pulmonary oedema [Recovered/Resolved]
  - Inappropriate antidiuretic hormone secretion [Unknown]
  - Hyperbilirubinaemia [Unknown]
  - Acute respiratory distress syndrome [Unknown]
  - Seizure [Recovered/Resolved]
  - Pain in extremity [Recovered/Resolved]
  - Arthritis infective [Recovered/Resolved]
  - Gastritis [Unknown]
  - White blood cell count decreased [Recovered/Resolved]

NARRATIVE: CASE EVENT DATE: 20211215
